FAERS Safety Report 12894737 (Version 1)
Quarter: 2016Q4

REPORT INFORMATION
  Report Type: Spontaneous
  Country: US (occurrence: US)
  Receive Date: 20161028
  Receipt Date: 20161028
  Transmission Date: 20170207
  Serious: No
  Sender: FDA-Public Use
  Company Number: US-ELI_LILLY_AND_COMPANY-US201610003793

PATIENT
  Age: 62 Year
  Sex: Female

DRUGS (1)
  1. HUMALOG [Suspect]
     Active Substance: INSULIN LISPRO
     Indication: TYPE 2 DIABETES MELLITUS
     Dosage: 12 U, WITH MEALS
     Route: 065
     Dates: start: 20160805

REACTIONS (5)
  - Malaise [Unknown]
  - Feeling abnormal [Unknown]
  - Meniscus injury [Unknown]
  - Blood glucose increased [Unknown]
  - Pain [Unknown]

NARRATIVE: CASE EVENT DATE: 20160911
